FAERS Safety Report 20052701 (Version 2)
Quarter: 2022Q1

REPORT INFORMATION
  Report Type: Spontaneous
  Country: US (occurrence: US)
  Receive Date: 20211110
  Receipt Date: 20220216
  Transmission Date: 20220424
  Serious: No
  Sender: FDA-Public Use
  Company Number: US-BRISTOL-MYERS SQUIBB COMPANY-BMS-2021-116638

PATIENT
  Age: 83 Year
  Sex: Male
  Weight: 68.038 kg

DRUGS (1)
  1. OPDIVO [Suspect]
     Active Substance: NIVOLUMAB
     Indication: Oesophageal carcinoma
     Dosage: 3 TREATMENTS, EVERY 2 WEEKS
     Route: 042
     Dates: start: 20210922

REACTIONS (9)
  - Fatigue [Unknown]
  - Nausea [Unknown]
  - Asthenia [Unknown]
  - Cough [Unknown]
  - Vomiting [Unknown]
  - Decreased appetite [Unknown]
  - Amnesia [Unknown]
  - Abdominal pain upper [Unknown]
  - Anaemia [Unknown]
